FAERS Safety Report 5331907-9 (Version None)
Quarter: 2007Q2

REPORT INFORMATION
  Report Type: 
  Country: None (occurrence: None)
  Receive Date: 20070518
  Receipt Date: 20070507
  Transmission Date: 20071010
  Serious: Yes (Other)
  Sender: FDA-Public Use
  Company Number: 230716K07USA

PATIENT
  Age: 43 Year
  Sex: Male

DRUGS (3)
  1. REBIF [Suspect]
     Indication: MULTIPLE SCLEROSIS
     Dosage: 44 MCG, 3 IN 1 WEEKS, SUBCUTANEOUS
     Route: 058
     Dates: start: 20040712, end: 20061201
  2. DEXAMETHASONE (DEXAMETHASONE /00016001/) [Suspect]
     Dosage: ONCE
     Dates: start: 20060227, end: 20060227
  3. WELLBUTRIN [Concomitant]

REACTIONS (10)
  - ABASIA [None]
  - ANXIETY [None]
  - DEEP VEIN THROMBOSIS [None]
  - DEPRESSION [None]
  - DISEASE RECURRENCE [None]
  - IMPAIRED WORK ABILITY [None]
  - INFECTION [None]
  - NEUROMA [None]
  - POST PROCEDURAL COMPLICATION [None]
  - VENOUS THROMBOSIS LIMB [None]
